FAERS Safety Report 21119362 (Version 1)
Quarter: 2022Q3

REPORT INFORMATION
  Report Type: Other
  Country: GB (occurrence: GB)
  Receive Date: 20220722
  Receipt Date: 20220722
  Transmission Date: 20221027
  Serious: Yes (Other)
  Sender: FDA-Public Use
  Company Number: None

PATIENT
  Age: 69 Year
  Sex: Male

DRUGS (4)
  1. PREDNISOLONE [Suspect]
     Active Substance: PREDNISOLONE
     Indication: Prostate cancer
     Dosage: UNK
     Route: 065
  2. ABIRATERONE ACETATE [Suspect]
     Active Substance: ABIRATERONE ACETATE
     Indication: Prostate cancer
     Dosage: UNK
     Route: 065
  3. OLAPARIB [Suspect]
     Active Substance: OLAPARIB
     Indication: Prostate cancer
     Dosage: UNK; INVESTIGATIONAL (TABLET; UNCOATED, ORAL)
     Route: 048
  4. ZOLADEX [Suspect]
     Active Substance: GOSERELIN ACETATE
     Indication: Prostate cancer
     Dosage: UNK
     Route: 065

REACTIONS (1)
  - Cerebrovascular accident [Not Recovered/Not Resolved]

NARRATIVE: CASE EVENT DATE: 20220318
